FAERS Safety Report 10070195 (Version 1)
Quarter: 2014Q2

REPORT INFORMATION
  Report Type: Spontaneous
  Country: CA (occurrence: None)
  Receive Date: 20140408
  Receipt Date: 20140408
  Transmission Date: 20141212
  Serious: Yes (Other)
  Sender: FDA-Public Use
  Company Number: 2014P1002885

PATIENT
  Age: 74 Year
  Sex: Male

DRUGS (23)
  1. CEFTAZIDIME [Suspect]
     Route: 042
  2. AMOXICILLIN TRIHYDRATE + POTASSIUM CLAVULANTE TABLET [Suspect]
     Route: 048
  3. CA SALT [Suspect]
     Route: 042
  4. CIPROFLOXACIN TABLETS, USP [Suspect]
     Route: 048
  5. OXALIPLATIN [Suspect]
     Route: 042
  6. FLUOROURACIL [Suspect]
     Route: 042
  7. LEVOGLUTAMIDE [Suspect]
     Route: 048
  8. CALCIUM FOLINATE [Suspect]
     Route: 042
  9. AMLODIPINE [Concomitant]
  10. ATENOLOL [Concomitant]
  11. DOCUSATE SODIUM [Concomitant]
  12. BETHAMETHASONE VALERATE [Concomitant]
  13. DEXAMETHASONE [Concomitant]
  14. DEXTROSE [Concomitant]
  15. HYZAAR [Concomitant]
  16. POTASSIUM CHLORIDE [Concomitant]
  17. GRANISETRON HYDROCHLORIDE [Concomitant]
  18. LOPERAMIDE HYDROCHLORIDE [Concomitant]
  19. FILGRASTIM [Concomitant]
  20. PANTOPRAZOLE [Concomitant]
  21. SENOKOT [Concomitant]
  22. PARACETAMOL [Concomitant]
  23. MG SALT [Suspect]

REACTIONS (3)
  - Renal failure acute [None]
  - Renal tubular necrosis [None]
  - Febrile neutropenia [None]
